FAERS Safety Report 7869741-8 (Version None)
Quarter: 2011Q4

REPORT INFORMATION
  Report Type: 
  Country: None (occurrence: None)
  Receive Date: 20111028
  Receipt Date: 20111028
  Transmission Date: 20120403
  Serious: Yes (Other)
  Sender: FDA-Public Use
  Company Number: None

PATIENT
  Age: 57 Year
  Sex: Female

DRUGS (1)
  1. PEG-INTRON [Suspect]
     Dosage: 120MCG ONCE WEEKLY SQ
     Route: 058
     Dates: start: 20110812, end: 20111025

REACTIONS (5)
  - HYPOAESTHESIA [None]
  - NAUSEA [None]
  - PAIN [None]
  - FATIGUE [None]
  - VISION BLURRED [None]
